FAERS Safety Report 9787250 (Version 1)
Quarter: 2013Q4

REPORT INFORMATION
  Report Type: Report from Study
  Country: DE (occurrence: DE)
  Receive Date: 20131230
  Receipt Date: 20131230
  Transmission Date: 20140711
  Serious: Yes (Hospitalization)
  Sender: FDA-Public Use
  Company Number: DE-ROCHE-1326734

PATIENT
  Age: 57 Year
  Sex: Male
  Weight: 90.3 kg

DRUGS (6)
  1. METHOXY POLYETHYLENE GLYCOL-EPOETIN BETA [Suspect]
     Indication: RENAL FAILURE CHRONIC
     Route: 042
     Dates: start: 20120404, end: 20121102
  2. VALSARTAN [Concomitant]
     Indication: HYPERTENSION
     Dosage: FREQUENCY 1-0-0
     Route: 048
     Dates: start: 20110927
  3. BISOPROLOL [Concomitant]
     Indication: HYPERTENSION
     Dosage: FREQUENCY 1-0-1
     Route: 048
  4. AMLODIPIN [Concomitant]
     Indication: HYPERTENSION
     Dosage: FREQUENCY 1-0-0
     Route: 048
  5. TORASEMID [Concomitant]
     Indication: RENAL FAILURE CHRONIC
     Dosage: FREQUENCY 1-0-0
     Route: 048
  6. HYDROCHLOROTHIAZIDE [Concomitant]
     Indication: RENAL FAILURE CHRONIC
     Dosage: FREQUENCY 2-0-0
     Route: 048

REACTIONS (4)
  - Pneumonia [Recovered/Resolved]
  - Decreased appetite [Recovered/Resolved]
  - Asthenia [Recovered/Resolved]
  - C-reactive protein increased [Recovered/Resolved]
